FAERS Safety Report 23302676 (Version 1)
Quarter: 2023Q4

REPORT INFORMATION
  Report Type: Spontaneous
  Country: US (occurrence: US)
  Receive Date: 20231215
  Receipt Date: 20231215
  Transmission Date: 20240110
  Serious: Yes (Hospitalization, Other)
  Sender: FDA-Public Use
  Company Number: US-FreseniusKabi-FK202320532

PATIENT
  Age: 69 Year
  Sex: Male

DRUGS (4)
  1. METHYLPREDNISOLONE [Suspect]
     Active Substance: METHYLPREDNISOLONE
     Indication: Eosinophilic myocarditis
  2. RITUXIMAB [Concomitant]
     Active Substance: RITUXIMAB
     Indication: Glomerulonephritis rapidly progressive
  3. CYCLOPHOSPHAMIDE [Concomitant]
     Active Substance: CYCLOPHOSPHAMIDE
     Indication: Glomerulonephritis rapidly progressive
  4. AVACOPAN [Concomitant]
     Active Substance: AVACOPAN
     Indication: Glomerulonephritis rapidly progressive

REACTIONS (3)
  - Klebsiella infection [Unknown]
  - Pneumonia pseudomonal [Unknown]
  - Glomerular filtration rate decreased [Unknown]
